FAERS Safety Report 22658644 (Version 1)
Quarter: 2023Q2

REPORT INFORMATION
  Report Type: Spontaneous
  Country: JP (occurrence: JP)
  Receive Date: 20230630
  Receipt Date: 20230630
  Transmission Date: 20230721
  Serious: Yes (Other)
  Sender: FDA-Public Use
  Company Number: JP-STERISCIENCE B.V.-2023-ST-001622

PATIENT
  Age: 9 Month
  Sex: Female

DRUGS (2)
  1. MIDAZOLAM [Suspect]
     Active Substance: MIDAZOLAM
     Indication: Sedative therapy
     Dosage: UNK
     Route: 065
     Dates: start: 2013
  2. CHLORAL HYDRATE [Suspect]
     Active Substance: CHLORAL HYDRATE
     Indication: Sedative therapy
     Dosage: UNK
     Route: 065
     Dates: start: 2013

REACTIONS (2)
  - Acute respiratory distress syndrome [Unknown]
  - Cardio-respiratory arrest [Unknown]

NARRATIVE: CASE EVENT DATE: 20130101
